FAERS Safety Report 4866585-6 (Version None)
Quarter: 2005Q4

REPORT INFORMATION
  Report Type: 
  Country: None (occurrence: None)
  Receive Date: 20051221
  Receipt Date: 20051214
  Transmission Date: 20060501
  Serious: Yes (Other)
  Sender: FDA-Public Use
  Company Number: 2005142511

PATIENT
  Age: 78 Year
  Sex: Female
  Weight: 90.7194 kg

DRUGS (3)
  1. ZOLOFT [Suspect]
     Indication: DEPRESSION
     Dosage: 150 MG (1 IN 1 D), ORAL  MANY  YEARS
     Route: 048
  2. ATENOLOL [Concomitant]
  3. ECOTRIN (ACETYLSALICYLIC ACID) [Concomitant]

REACTIONS (5)
  - CARDIAC DISORDER [None]
  - CARDIAC PACEMAKER REPLACEMENT [None]
  - HYPERTENSION [None]
  - TOOTH EXTRACTION [None]
  - UNEVALUABLE EVENT [None]
